FAERS Safety Report 5594735-5 (Version None)
Quarter: 2007Q4

REPORT INFORMATION
  Report Type: 
  Country: None (occurrence: None)
  Receive Date: 20071218
  Receipt Date: 20070410
  Transmission Date: 20080405
  Serious: Yes (Hospitalization, Other)
  Sender: FDA-Public Use
  Company Number: 2007028654

PATIENT
  Age: 38 Year
  Sex: Female
  Weight: 95.3 kg

DRUGS (1)
  1. BEXTRA [Suspect]
     Indication: EXOSTOSIS
     Dosage: 60 MG (20 MG, 3 IN 1 D)
     Dates: start: 20020101, end: 20050101

REACTIONS (2)
  - ANXIETY [None]
  - PULMONARY EMBOLISM [None]
